FAERS Safety Report 7220448-X (Version None)
Quarter: 2011Q1

REPORT INFORMATION
  Report Type: 
  Country: None (occurrence: None)
  Receive Date: 20110111
  Receipt Date: 20101231
  Transmission Date: 20110831
  Serious: Yes (Hospitalization, Other)
  Sender: FDA-Public Use
  Company Number: PHEH2006US01250

PATIENT
  Sex: Male
  Weight: 74.829 kg

DRUGS (35)
  1. PHENERGAN [Concomitant]
  2. FLEXERIL [Concomitant]
  3. AMBIEN [Concomitant]
  4. FIBERCON (POLYCARBOPHIL CALCIUM) [Concomitant]
  5. TRANDOLAPRIL [Concomitant]
  6. MIACALCIN [Concomitant]
  7. HYDROCODONE [Concomitant]
  8. COUMADIN [Concomitant]
  9. MS CONTIN [Concomitant]
  10. MIRALAX [Concomitant]
  11. AREDIA [Suspect]
     Indication: MULTIPLE MYELOMA
     Dosage: UNK,UNK
     Dates: start: 19980101
  12. SPIRONOLACTONE W/ HYDROCHLOROTHIAZIDE [Concomitant]
     Dosage: UNK, QD
  13. MAVIK [Concomitant]
     Dosage: 2 MG, QD
  14. TIAZAC [Concomitant]
  15. EFFEXOR XR [Concomitant]
     Dosage: 150 MG, QD
     Route: 048
  16. DEXAMETHASONE [Concomitant]
  17. COLACE [Concomitant]
  18. MORPHINE SULFATE [Concomitant]
     Dosage: 30 MG, UNK
  19. ALPRAZOLAM [Concomitant]
     Dosage: 0.25 MG, PRN
  20. REVLIMID [Concomitant]
  21. CYCLOBENZAPRINE [Concomitant]
  22. ALDACTAZIDE [Concomitant]
  23. REGLAN [Concomitant]
  24. ZOMETA [Suspect]
     Indication: MULTIPLE MYELOMA
     Dosage: UNK,UNK
     Dates: start: 20020101, end: 20040901
  25. HYDROCODONE BITARTRATE AND ACETAMINOPHEN [Concomitant]
     Dosage: 10/325  3-4 DAILY
  26. LORTAB [Concomitant]
  27. PREVACID [Concomitant]
  28. ATROVENT [Concomitant]
  29. PROCHLORPERAZINE [Concomitant]
     Dosage: 10 MG, PRN
  30. OXYCONTIN [Concomitant]
  31. NORVASK [Concomitant]
  32. VICOPROFEN [Concomitant]
  33. PEPCID [Concomitant]
  34. ALBUTEROL [Concomitant]
  35. AMITIZA [Concomitant]

REACTIONS (50)
  - SWELLING [None]
  - CONSTIPATION [None]
  - LETHARGY [None]
  - ASTHENIA [None]
  - PRIMARY SEQUESTRUM [None]
  - GINGIVAL BLEEDING [None]
  - IRRITABLE BOWEL SYNDROME [None]
  - ASPARTATE AMINOTRANSFERASE INCREASED [None]
  - ANAEMIA [None]
  - OSTEONECROSIS OF JAW [None]
  - REGURGITATION [None]
  - OSTEOPOROSIS [None]
  - SALIVARY DUCT OBSTRUCTION [None]
  - FACE OEDEMA [None]
  - JAW FRACTURE [None]
  - METASTASES TO BONE [None]
  - PLATELET COUNT INCREASED [None]
  - ALANINE AMINOTRANSFERASE INCREASED [None]
  - PATHOLOGICAL FRACTURE [None]
  - INTERVERTEBRAL DISC DEGENERATION [None]
  - DYSPHAGIA [None]
  - ERYTHEMA [None]
  - BONE DISORDER [None]
  - GINGIVAL OEDEMA [None]
  - FIBROSIS [None]
  - NERVE COMPRESSION [None]
  - SPLENOMEGALY [None]
  - METASTATIC PAIN [None]
  - MULTIPLE MYELOMA [None]
  - ORAL PAIN [None]
  - INDURATION [None]
  - CELLULITIS [None]
  - OSTEOARTHRITIS [None]
  - RENAL FAILURE [None]
  - LUMBAR SPINAL STENOSIS [None]
  - CLAVICLE FRACTURE [None]
  - ABSCESS ORAL [None]
  - PAIN IN JAW [None]
  - PYREXIA [None]
  - TRISMUS [None]
  - INFECTION [None]
  - EXCESSIVE GRANULATION TISSUE [None]
  - HAEMATEMESIS [None]
  - PANCYTOPENIA [None]
  - DISSEMINATED INTRAVASCULAR COAGULATION [None]
  - SINUSITIS [None]
  - GYNAECOMASTIA [None]
  - OSTEOMYELITIS [None]
  - NEUROPATHY PERIPHERAL [None]
  - INTERVERTEBRAL DISC DISORDER [None]
